FAERS Safety Report 26216197 (Version 1)
Quarter: 2025Q4

REPORT INFORMATION
  Report Type: Spontaneous
  Country: EG (occurrence: EG)
  Receive Date: 20251231
  Receipt Date: 20251231
  Transmission Date: 20260117
  Serious: Yes (Other)
  Sender: HIKMA
  Company Number: EG-HIKMA PHARMACEUTICALS-EG-H14001-25-13895

PATIENT
  Age: 41 Year
  Sex: Female
  Weight: 52 kg

DRUGS (7)
  1. CISPLATIN [Suspect]
     Active Substance: CISPLATIN
     Indication: Oesophageal cancer metastatic
     Dosage: 100 MG, 3W
     Dates: start: 20250826
  2. FLUOROURACIL [Suspect]
     Active Substance: FLUOROURACIL
     Indication: Oesophageal cancer metastatic
     Dosage: 1500 MG, 3W [OVER 24 HOURS (FROM DAY 1 TO DAY 4)]
     Dates: start: 20250826
  3. DEXAMETHASONE [Concomitant]
     Active Substance: DEXAMETHASONE
     Indication: Chemotherapy side effect prophylaxis
     Dosage: UNKNOWN,(OVER 30 MINUTES)
  4. EMEX [DOMPERIDONE] [Concomitant]
     Indication: Product used for unknown indication
     Dosage: UNKNOWN, OVER 30 MINUTES
  5. LASIPHAR [Concomitant]
     Indication: Premedication
     Dosage: UNKNOWN, (OVER 1 HOUR)
  6. MAGNESIUM SULFATE [Concomitant]
     Active Substance: MAGNESIUM SULFATE
     Indication: Product used for unknown indication
     Dosage: UNKNOWN, (OVER 2 HOURS)
  7. POTASSIUM CHLORIDE [Concomitant]
     Active Substance: POTASSIUM CHLORIDE
     Indication: Product used for unknown indication
     Dosage: UNKNOWN, (OVER 2 HOURS)

REACTIONS (3)
  - Dyspnoea [Recovered/Resolved]
  - Productive cough [Unknown]
  - Sputum retention [Recovered/Resolved]

NARRATIVE: CASE EVENT DATE: 20250902
